FAERS Safety Report 5831176-7 (Version None)
Quarter: 2008Q3

REPORT INFORMATION
  Report Type: 
  Country: None (occurrence: None)
  Receive Date: 20080801
  Receipt Date: 20080513
  Transmission Date: 20090109
  Serious: No
  Sender: FDA-Public Use
  Company Number: US-BRISTOL-MYERS SQUIBB COMPANY-14190110

PATIENT
  Age: 88 Year
  Sex: Male
  Weight: 88 kg

DRUGS (1)
  1. COUMADIN [Suspect]
     Indication: CEREBROVASCULAR ACCIDENT
     Dosage: TAKING FOR MANY YEARS.

REACTIONS (1)
  - HAEMORRHAGE [None]
